FAERS Safety Report 24940897 (Version 2)
Quarter: 2025Q3

REPORT INFORMATION
  Report Type: Report from Study
  Country: AE (occurrence: AE)
  Receive Date: 20250207
  Receipt Date: 20250802
  Transmission Date: 20251021
  Serious: Yes (Other)
  Sender: ALEXION PHARMACEUTICALS
  Company Number: AE-AstraZeneca-CH-00799669A

PATIENT
  Sex: Male

DRUGS (5)
  1. ACALABRUTINIB [Suspect]
     Active Substance: ACALABRUTINIB
     Indication: Chronic lymphocytic leukaemia
     Dosage: 100 MILLIGRAM, Q12H
     Dates: start: 202407
  2. ALLOPURINOL [Concomitant]
     Active Substance: ALLOPURINOL
     Route: 065
  3. Belladonna, sulfamethoxazole and trimethoprim [Concomitant]
     Route: 065
  4. ACYCLOVIR [Concomitant]
     Active Substance: ACYCLOVIR
     Route: 065
  5. SODIUM HYALURONATE [Concomitant]
     Active Substance: HYALURONATE SODIUM
     Route: 065

REACTIONS (12)
  - Liver disorder [Unknown]
  - Agranulocytosis [Unknown]
  - Pneumocystis jirovecii pneumonia [Unknown]
  - Renal disorder [Unknown]
  - Zoster sine herpete [Unknown]
  - Gout [Unknown]
  - Conjunctivitis [Unknown]
  - Cataract [Unknown]
  - Dry eye [Unknown]
  - Hepatitis B [Unknown]
  - Hypertension [Unknown]
  - Anaemia [Unknown]

NARRATIVE: CASE EVENT DATE: 20250201
